FAERS Safety Report 11208157 (Version 1)
Quarter: 2015Q2

REPORT INFORMATION
  Report Type: Spontaneous
  Country: FI (occurrence: FI)
  Receive Date: 20150622
  Receipt Date: 20150622
  Transmission Date: 20150821
  Serious: Yes (Life-Threatening, Other)
  Sender: FDA-Public Use
  Company Number: FI-PRINSTON PHARMACEUTICAL INC.-2015PRN00035

PATIENT
  Age: 37 Day
  Weight: 1.78 kg

DRUGS (1)
  1. LEVETIRACETAM. [Suspect]
     Active Substance: LEVETIRACETAM
     Dosage: 100 MG, ONCE
     Route: 048

REACTIONS (9)
  - Apnoea [Recovered/Resolved]
  - Wrong patient received medication [Recovered/Resolved]
  - Somnolence [None]
  - Accidental overdose [Recovered/Resolved]
  - Lethargy [None]
  - Anaemia [Recovered/Resolved]
  - Unresponsive to stimuli [None]
  - Toxicity to various agents [Recovered/Resolved]
  - Heart rate decreased [Recovered/Resolved]
